FAERS Safety Report 5102421-0 (Version None)
Quarter: 2006Q3

REPORT INFORMATION
  Report Type: 
  Country: None (occurrence: None)
  Receive Date: 20060907
  Receipt Date: 20060724
  Transmission Date: 20061208
  Serious: Yes (Death, Other)
  Sender: FDA-Public Use
  Company Number: US200604002334

PATIENT
  Age: 80 Year
  Sex: Male
  Weight: 68 kg

DRUGS (15)
  1. ZYPREXA [Suspect]
     Indication: DEPRESSION
     Dosage: 10 MG
  2. NEURONTIN [Concomitant]
  3. PREVACID [Concomitant]
  4. ATENOLOL [Concomitant]
  5. ALTACE [Concomitant]
  6. EFFEXOR [Concomitant]
  7. ALPHAGAN [Concomitant]
  8. LANOXIN [Concomitant]
  9. PRAVACHOL [Concomitant]
  10. PILOPINE HS (PILOCARPINE HYDROCHLORIDE) [Concomitant]
  11. COMBIVENT [Concomitant]
  12. PEPCID [Concomitant]
  13. DIGITEX (DIGOXIN) [Concomitant]
  14. NITROGLYCERIN TRANSDERMAL SYSTEM (GLYCERYL TRINITRATE) [Concomitant]
  15. METOPROLOL (METOPROLOL) [Concomitant]

REACTIONS (5)
  - DIABETES MELLITUS [None]
  - DIABETIC KETOACIDOSIS [None]
  - HYPERGLYCAEMIC HYPEROSMOLAR NONKETOTIC SYNDROME [None]
  - MICTURITION URGENCY [None]
  - URINARY INCONTINENCE [None]
